FAERS Safety Report 23406006 (Version 11)
Quarter: 2024Q2

REPORT INFORMATION
  Report Type: Report from Study
  Country: BG (occurrence: BG)
  Receive Date: 20240116
  Receipt Date: 20240517
  Transmission Date: 20240716
  Serious: Yes (Hospitalization, Other)
  Sender: FDA-Public Use
  Company Number: BG-AKCEA THERAPEUTICS, INC.-2024IS001058

PATIENT

DRUGS (3)
  1. TEGSEDI [Suspect]
     Active Substance: INOTERSEN SODIUM
     Indication: Hereditary neuropathic amyloidosis
     Dosage: UNK UNK, QW
     Route: 065
     Dates: start: 20240122
  2. TEGSEDI [Suspect]
     Active Substance: INOTERSEN SODIUM
     Dosage: 284 MILLIGRAM, QOW
     Route: 058
  3. TEGSEDI [Suspect]
     Active Substance: INOTERSEN SODIUM
     Dosage: UNK
     Route: 065
     Dates: start: 20230301

REACTIONS (24)
  - Fall [Unknown]
  - Quadriparesis [Unknown]
  - Cervical spinal stenosis [Unknown]
  - Spinal cord paralysis [Recovering/Resolving]
  - Cervical vertebral fracture [Unknown]
  - Myelopathy [Unknown]
  - Loss of consciousness [Recovered/Resolved]
  - Cardiac failure congestive [Unknown]
  - Pleural effusion [Not Recovered/Not Resolved]
  - Cardiomyopathy [Unknown]
  - Protein total decreased [Unknown]
  - Hypoalbuminaemia [Unknown]
  - Bundle branch block left [Unknown]
  - General physical health deterioration [Unknown]
  - Pallor [Unknown]
  - Breath sounds abnormal [Unknown]
  - Costovertebral angle tenderness [Unknown]
  - Mobility decreased [Not Recovered/Not Resolved]
  - Left ventricular dysfunction [Not Recovered/Not Resolved]
  - Muscular weakness [Not Recovered/Not Resolved]
  - Sensory loss [Not Recovered/Not Resolved]
  - Blood pressure decreased [Recovered/Resolved]
  - Loss of personal independence in daily activities [Not Recovered/Not Resolved]
  - Asthenia [Not Recovered/Not Resolved]

NARRATIVE: CASE EVENT DATE: 20240108
